FAERS Safety Report 23864883 (Version 3)
Quarter: 2024Q2

REPORT INFORMATION
  Report Type: Spontaneous
  Country: US (occurrence: None)
  Receive Date: 20240516
  Receipt Date: 20240610
  Transmission Date: 20240715
  Serious: No
  Sender: FDA-Public Use
  Company Number: 2024A108427

PATIENT
  Age: 80 Year
  Sex: Female

DRUGS (1)
  1. BREZTRI [Suspect]
     Active Substance: BUDESONIDE\FORMOTEROL\GLYCOPYRROLATE
     Route: 055

REACTIONS (7)
  - Cough [Unknown]
  - Nervousness [Unknown]
  - Incorrect dose administered by device [Unknown]
  - Device use issue [Unknown]
  - Adverse event [Unknown]
  - Eye disorder [Unknown]
  - Device defective [Unknown]
